FAERS Safety Report 9135080 (Version 2)
Quarter: 2013Q1

REPORT INFORMATION
  Report Type: Spontaneous
  Country: US (occurrence: US)
  Receive Date: 20130304
  Receipt Date: 20130307
  Transmission Date: 20140127
  Serious: Yes (Other)
  Sender: FDA-Public Use
  Company Number: US-TEVA-389005USA

PATIENT
  Sex: Male

DRUGS (2)
  1. BUDESONIDE [Suspect]
     Indication: NASAL POLYPS
     Dosage: 0.5 MG/2 ML; NASAL INHALATION
     Dates: start: 20120830
  2. ADVAIR [Concomitant]

REACTIONS (4)
  - Tongue neoplasm malignant stage unspecified [Unknown]
  - Glossodynia [Not Recovered/Not Resolved]
  - Tongue ulceration [Unknown]
  - Glossodynia [Not Recovered/Not Resolved]
